FAERS Safety Report 18726573 (Version 1)
Quarter: 2021Q1

REPORT INFORMATION
  Report Type: Spontaneous
  Country: US (occurrence: US)
  Receive Date: 20210112
  Receipt Date: 20210112
  Transmission Date: 20210419
  Serious: Yes (Other)
  Sender: FDA-Public Use
  Company Number: US-AUROBINDO-AUR-APL-2014-04550

PATIENT
  Age: 25 Year
  Sex: Female

DRUGS (1)
  1. TERBINAFINE. [Suspect]
     Active Substance: TERBINAFINE
     Indication: ONYCHOMYCOSIS
     Dosage: UNK
     Route: 048
     Dates: start: 201305

REACTIONS (4)
  - Erythema [Recovered/Resolved]
  - Oedema [Recovered/Resolved]
  - Rash pruritic [Recovered/Resolved]
  - Solar urticaria [Recovered/Resolved]

NARRATIVE: CASE EVENT DATE: 2013
